FAERS Safety Report 6862936-1 (Version None)
Quarter: 2010Q3

REPORT INFORMATION
  Report Type: 
  Country: None (occurrence: None)
  Receive Date: 20100721
  Receipt Date: 20100712
  Transmission Date: 20110219
  Serious: Yes (Other)
  Sender: FDA-Public Use
  Company Number: JP-JNJCH-2010016583

PATIENT
  Age: 45 Year
  Sex: Male

DRUGS (3)
  1. ZYRTEC [Suspect]
     Indication: RHINITIS
     Dosage: TEXT:10 MG QD
     Route: 048
     Dates: start: 20100529, end: 20100601
  2. GASTER [Concomitant]
     Dosage: TEXT:UNKNOWN DOSE
     Route: 065
  3. CEFDITOREN [Concomitant]
     Dosage: TEXT:UNKNOWN DOSE
     Route: 048

REACTIONS (2)
  - ASPARTATE AMINOTRANSFERASE ABNORMAL [None]
  - HEPATIC FUNCTION ABNORMAL [None]
